FAERS Safety Report 9978219 (Version 1)
Quarter: 2014Q1

REPORT INFORMATION
  Report Type: Spontaneous
  Country: US (occurrence: US)
  Receive Date: 20140306
  Receipt Date: 20140306
  Transmission Date: 20141002
  Serious: Yes (Death)
  Sender: FDA-Public Use
  Company Number: US-BANPHARM-20142316

PATIENT
  Age: 56 Year
  Sex: Male

DRUGS (10)
  1. DIPHENHYDRAMINE UNKNOWN PRODUCT [Suspect]
     Route: 048
  2. ACETAMINOPHEN/HYDROCODONE [Suspect]
  3. OXYCODONE [Suspect]
  4. FENTANYL [Suspect]
  5. PENTAZOCINE [Suspect]
  6. BUTALBITAL [Suspect]
  7. ZOLPIDEM [Suspect]
  8. AMITRIPTYLINE [Suspect]
  9. DEXTROMETHORPHAN [Suspect]
  10. PROPOXYPHENE [Suspect]

REACTIONS (2)
  - Death [Fatal]
  - Drug abuse [Fatal]
